FAERS Safety Report 5732916-8 (Version None)
Quarter: 2008Q2

REPORT INFORMATION
  Report Type: 
  Country: None (occurrence: None)
  Receive Date: 20080509
  Receipt Date: 20080318
  Transmission Date: 20081010
  Serious: No
  Sender: FDA-Public Use
  Company Number: A0716184A

PATIENT
  Age: 55 Year
  Sex: Male

DRUGS (3)
  1. COREG CR [Suspect]
     Indication: LEFT VENTRICULAR DYSFUNCTION
     Dosage: 20MG PER DAY
     Route: 048
     Dates: start: 20080314
  2. PULMICORT [Concomitant]
  3. FLONASE [Concomitant]

REACTIONS (2)
  - HEADACHE [None]
  - IRRITABILITY [None]
